FAERS Safety Report 4837415-3 (Version None)
Quarter: 2005Q4

REPORT INFORMATION
  Report Type: 
  Country: None (occurrence: None)
  Receive Date: 20051128
  Receipt Date: 20051114
  Transmission Date: 20060501
  Serious: Yes (Hospitalization)
  Sender: FDA-Public Use
  Company Number: DE-JNJFOC-20051103849

PATIENT
  Age: 49 Year
  Sex: Female

DRUGS (15)
  1. HALDOL [Suspect]
     Route: 048
  2. HALDOL [Suspect]
     Indication: DRUG USE FOR UNKNOWN INDICATION
     Route: 048
  3. LEPONEX [Suspect]
     Route: 048
  4. LEPONEX [Suspect]
     Route: 048
  5. LEPONEX [Suspect]
     Indication: DRUG USE FOR UNKNOWN INDICATION
     Route: 048
  6. RISPERDAL [Concomitant]
     Dosage: 2-4 MG
     Route: 048
  7. RISPERDAL [Concomitant]
     Route: 048
  8. EUNERPAN [Concomitant]
  9. LASIX [Concomitant]
  10. ADALAT [Concomitant]
  11. MICARDIS [Concomitant]
  12. CATAPRESAN [Concomitant]
  13. L-THYROXIN [Concomitant]
  14. BELOC-ZOK [Concomitant]
  15. BELOC-ZOK [Concomitant]

REACTIONS (6)
  - DYSARTHRIA [None]
  - GAIT DISTURBANCE [None]
  - MYOCLONUS [None]
  - PNEUMONIA [None]
  - PSYCHOTIC DISORDER [None]
  - THINKING ABNORMAL [None]
